FAERS Safety Report 24720085 (Version 2)
Quarter: 2025Q1

REPORT INFORMATION
  Report Type: Spontaneous
  Country: US (occurrence: US)
  Receive Date: 20241211
  Receipt Date: 20250107
  Transmission Date: 20250409
  Serious: No
  Sender: ELI LILLY AND COMPANY
  Company Number: US-ELI_LILLY_AND_COMPANY-US202412005912

PATIENT
  Age: 71 Year
  Sex: Male

DRUGS (2)
  1. TALTZ [Suspect]
     Active Substance: IXEKIZUMAB
     Indication: Guttate psoriasis
     Route: 058
  2. MINOCYCLINE [Suspect]
     Active Substance: MINOCYCLINE HYDROCHLORIDE
     Indication: Perioral dermatitis
     Route: 065

REACTIONS (4)
  - Back pain [Unknown]
  - Musculoskeletal stiffness [Unknown]
  - Perioral dermatitis [Unknown]
  - Illness [Unknown]
